FAERS Safety Report 18150447 (Version 2)
Quarter: 2020Q3

REPORT INFORMATION
  Report Type: Spontaneous
  Country: TR (occurrence: TR)
  Receive Date: 20200814
  Receipt Date: 20200821
  Transmission Date: 20201103
  Serious: Yes (Other)
  Sender: FDA-Public Use
  Company Number: TR-BAUSCH-BL-2020-021910

PATIENT
  Age: 24 Year
  Sex: Female

DRUGS (3)
  1. VANCOMYCIN [Concomitant]
     Active Substance: VANCOMYCIN
     Indication: PRODUCT USED FOR UNKNOWN INDICATION
  2. CEFTRIAXONE. [Suspect]
     Active Substance: CEFTRIAXONE
     Indication: BRAIN ABSCESS
     Route: 065
  3. METRONIDAZOLE. [Suspect]
     Active Substance: METRONIDAZOLE
     Indication: BRAIN ABSCESS
     Route: 042

REACTIONS (2)
  - Peripheral motor neuropathy [Unknown]
  - Peripheral sensory neuropathy [Unknown]
